FAERS Safety Report 10149471 (Version 1)
Quarter: 2014Q2

REPORT INFORMATION
  Report Type: Spontaneous
  Country: FR (occurrence: FR)
  Receive Date: 20140502
  Receipt Date: 20140502
  Transmission Date: 20141212
  Serious: Yes (Death, Hospitalization)
  Sender: FDA-Public Use
  Company Number: FR-PFIZER INC-2014119590

PATIENT
  Age: 68 Year
  Sex: Male

DRUGS (11)
  1. AMIODARONE HCL [Suspect]
     Dosage: 200 MG, DAILY
     Route: 048
  2. XARELTO [Interacting]
     Indication: ATRIAL FIBRILLATION
     Dosage: UNK
     Route: 048
     Dates: start: 20140310, end: 20140317
  3. PRADAXA [Interacting]
     Dosage: UNK
     Route: 048
     Dates: end: 20140310
  4. COVERSYL [Concomitant]
     Dosage: UNK
  5. BISOPROLOL [Concomitant]
     Dosage: UNK
  6. ADENURIC [Concomitant]
  7. LORAZEPAM [Concomitant]
  8. INSPRA [Concomitant]
  9. FUROSEMIDE [Concomitant]
  10. FEXOFENADINE [Concomitant]
  11. AVAMYS [Concomitant]

REACTIONS (8)
  - Cardiac failure [Fatal]
  - Drug interaction [Recovered/Resolved]
  - Shock haemorrhagic [Recovered/Resolved]
  - Rectal haemorrhage [Recovered/Resolved]
  - Haemoglobin decreased [Recovered/Resolved]
  - Epistaxis [Recovered/Resolved]
  - Loss of consciousness [Recovered/Resolved]
  - International normalised ratio increased [Recovered/Resolved]
